FAERS Safety Report 5414810-5 (Version None)
Quarter: 2007Q3

REPORT INFORMATION
  Report Type: 
  Country: None (occurrence: None)
  Receive Date: 20070813
  Receipt Date: 20070803
  Transmission Date: 20080115
  Serious: Yes (Hospitalization)
  Sender: FDA-Public Use
  Company Number: 2007SP011010

PATIENT
  Age: 50 Year
  Sex: Male

DRUGS (2)
  1. PEG-INTRON [Suspect]
     Indication: HEPATITIS C
     Dosage: ;SC
     Route: 058
     Dates: start: 20070316, end: 20070613
  2. RIBAVIRIN [Suspect]
     Indication: HEPATITIS C
     Dosage: ;PO
     Route: 048
     Dates: start: 20070316, end: 20070528

REACTIONS (6)
  - ANAEMIA [None]
  - FALL [None]
  - HYPOAESTHESIA [None]
  - HYPOKINESIA [None]
  - JOINT INJURY [None]
  - LIMB INJURY [None]
